FAERS Safety Report 14491535 (Version 1)
Quarter: 2018Q1

REPORT INFORMATION
  Report Type: Spontaneous
  Country: US (occurrence: US)
  Receive Date: 20180205
  Receipt Date: 20180205
  Transmission Date: 20180509
  Serious: Yes (Hospitalization)
  Sender: FDA-Public Use
  Company Number: None

PATIENT
  Age: 45 Year
  Sex: Female

DRUGS (20)
  1. CARVEDILOL. [Concomitant]
     Active Substance: CARVEDILOL
  2. RALOXIFENE. [Concomitant]
     Active Substance: RALOXIFENE
  3. LISINOPRIL. [Concomitant]
     Active Substance: LISINOPRIL
  4. HYDROXYCHLOR [Concomitant]
     Active Substance: HYDROXYCHLOROQUINE
  5. POT CHLORIDE [Concomitant]
     Active Substance: POTASSIUM CHLORIDE
  6. SMZ/TMP [Concomitant]
     Active Substance: SULFAMETHOXAZOLE\TRIMETHOPRIM
  7. MYFORTIC [Concomitant]
     Active Substance: MYCOPHENOLATE SODIUM
  8. NIFEDIPINE. [Concomitant]
     Active Substance: NIFEDIPINE
  9. SODIUM BICAR [Concomitant]
  10. ULORIC [Concomitant]
     Active Substance: FEBUXOSTAT
  11. CIPROFLOXACIN. [Concomitant]
     Active Substance: CIPROFLOXACIN
  12. RALOXIFENE. [Concomitant]
     Active Substance: RALOXIFENE
  13. FUROSEMIDE. [Concomitant]
     Active Substance: FUROSEMIDE
  14. PREDNISONE. [Concomitant]
     Active Substance: PREDNISONE
  15. PROCRIT [Suspect]
     Active Substance: ERYTHROPOIETIN
     Indication: SIDEROBLASTIC ANAEMIA
     Dosage: DOSE - 20,000 U?STRENGTH - 20,000 U/ML MDV?
     Route: 058
     Dates: start: 20150909
  16. PANTOPRAZOLE [Concomitant]
     Active Substance: PANTOPRAZOLE
  17. MYCOPHENOLAT [Concomitant]
     Active Substance: MYCOPHENOLATE MOFETIL
  18. DIPHEN/ATROP [Concomitant]
     Active Substance: ATROPINE SULFATE\DIPHENOXYLATE
  19. MEDROXYPR AC MEDROXYPROGESTERONE ACETATE 150 MG [Concomitant]
     Active Substance: MEDROXYPROGESTERONE ACETATE
  20. FLUCONAZOLE. [Concomitant]
     Active Substance: FLUCONAZOLE

REACTIONS (2)
  - Systemic lupus erythematosus [None]
  - Condition aggravated [None]

NARRATIVE: CASE EVENT DATE: 20180104
